FAERS Safety Report 5520821-1 (Version None)
Quarter: 2007Q4

REPORT INFORMATION
  Report Type: 
  Country: None (occurrence: None)
  Receive Date: 20071116
  Receipt Date: 20071116
  Transmission Date: 20080405
  Serious: Yes (Hospitalization)
  Sender: FDA-Public Use
  Company Number: None

PATIENT
  Age: 74 Year
  Sex: Male
  Weight: 78.9259 kg

DRUGS (2)
  1. CETUXIMAB 100MG/50ML IMCLONE/BRISTOL MYERS SQUIBB [Suspect]
     Indication: LUNG ADENOCARCINOMA
     Dosage: 488MG WEEKLY IV DRIP
     Route: 041
     Dates: start: 20071011, end: 20071109
  2. CETUXIMAB 100MG/50ML IMCLONE/BRISTOL MYERS SQUIBB [Suspect]
     Indication: METASTASES TO LIVER
     Dosage: 488MG WEEKLY IV DRIP
     Route: 041
     Dates: start: 20071011, end: 20071109

REACTIONS (2)
  - ASTHENIA [None]
  - GAIT DISTURBANCE [None]
